FAERS Safety Report 15636205 (Version 1)
Quarter: 2018Q4

REPORT INFORMATION
  Report Type: Spontaneous
  Country: US (occurrence: US)
  Receive Date: 20181114
  Receipt Date: 20181114
  Transmission Date: 20190205
  Serious: Yes (Disabling, Other)
  Sender: FDA-Public Use
  Company Number: None

PATIENT
  Age: 11 Week
  Sex: Female

DRUGS (3)
  1. CYMBALTA [Suspect]
     Active Substance: DULOXETINE HYDROCHLORIDE
     Indication: ANXIETY
     Dosage: ?          QUANTITY:180 DF DOSAGE FORM;?
     Route: 048
     Dates: start: 20131104
  2. CYMBALTA [Suspect]
     Active Substance: DULOXETINE HYDROCHLORIDE
     Indication: DEPRESSION
     Dosage: ?          QUANTITY:180 DF DOSAGE FORM;?
     Route: 048
     Dates: start: 20131104
  3. METOPROLOL. [Concomitant]
     Active Substance: METOPROLOL

REACTIONS (8)
  - Paraesthesia [None]
  - Diarrhoea [None]
  - Abdominal pain upper [None]
  - Anxiety [None]
  - Panic attack [None]
  - Tinnitus [None]
  - Pain [None]
  - Drug withdrawal syndrome [None]

NARRATIVE: CASE EVENT DATE: 20181114
